FAERS Safety Report 7861402-4 (Version None)
Quarter: 2011Q4

REPORT INFORMATION
  Report Type: 
  Country: None (occurrence: None)
  Receive Date: 20111027
  Receipt Date: 20111019
  Transmission Date: 20120403
  Serious: Yes (Death, Hospitalization)
  Sender: FDA-Public Use
  Company Number: KR-ACTELION-A-CH2011-55355

PATIENT
  Age: 34 Year
  Sex: Female

DRUGS (3)
  1. TRACLEER [Suspect]
     Indication: PULMONARY ARTERIAL HYPERTENSION
     Dosage: 125 MG, BID
     Route: 048
     Dates: start: 20060101, end: 20111011
  2. VIAGRA [Concomitant]
  3. DIURETICS [Concomitant]

REACTIONS (2)
  - DEATH [None]
  - SYNCOPE [None]
